FAERS Safety Report 17890423 (Version 1)
Quarter: 2020Q2

REPORT INFORMATION
  Report Type: Spontaneous
  Country: JP (occurrence: JP)
  Receive Date: 20200612
  Receipt Date: 20200612
  Transmission Date: 20200714
  Serious: Yes (Other)
  Sender: FDA-Public Use
  Company Number: JP-AMGEN-JPNSP2020077010

PATIENT
  Age: 6 Year
  Sex: Male

DRUGS (2)
  1. BLINCYTO [Suspect]
     Active Substance: BLINATUMOMAB
     Dosage: 15 MICROGRAM, QD
     Route: 065
  2. BLINCYTO [Suspect]
     Active Substance: BLINATUMOMAB
     Indication: ACUTE LYMPHOCYTIC LEUKAEMIA RECURRENT
     Dosage: 9 MICROGRAM, QD
     Route: 065
     Dates: start: 20200511

REACTIONS (4)
  - Infusion site haemorrhage [Recovered/Resolved]
  - Aspartate aminotransferase increased [Recovered/Resolved]
  - Catheter site haemorrhage [Recovered/Resolved]
  - CSF cell count increased [Recovered/Resolved]

NARRATIVE: CASE EVENT DATE: 20200512
